FAERS Safety Report 9913261 (Version 3)
Quarter: 2014Q2

REPORT INFORMATION
  Report Type: Spontaneous
  Country: JP (occurrence: JP)
  Receive Date: 20140220
  Receipt Date: 20140409
  Transmission Date: 20141212
  Serious: Yes (Hospitalization, Other)
  Sender: FDA-Public Use
  Company Number: JP-EISAI INC-E2090-03117-SPO-JP

PATIENT
  Age: 79 Year
  Sex: Female

DRUGS (6)
  1. EXCEGRAN [Suspect]
     Indication: PARKINSONISM
     Dosage: 50 MG DAILY
     Route: 048
     Dates: start: 20130312, end: 20130411
  2. MENESIT [Concomitant]
     Indication: PARKINSONISM
     Dosage: 300 MG DAILY
     Route: 048
     Dates: start: 20130108
  3. BI-SIFROL [Concomitant]
     Indication: PARKINSONISM
     Dosage: 1MG DAILY
     Route: 048
     Dates: start: 20130115, end: 20130311
  4. SYMMETREL [Concomitant]
     Indication: PARKINSONISM
     Dosage: 100MG DAILY
     Route: 048
     Dates: start: 20130122, end: 20130402
  5. MIRAPEX-LA [Concomitant]
     Indication: PARKINSONISM
     Dosage: 1.5MG DAILY
     Route: 048
     Dates: start: 20130312, end: 20130404
  6. L-DOPA [Concomitant]
     Indication: DEMENTIA WITH LEWY BODIES
     Dosage: UNKNOWN
     Route: 065
     Dates: start: 20130108

REACTIONS (5)
  - Delusion [Recovering/Resolving]
  - Hallucination [Recovering/Resolving]
  - Neuroleptic malignant syndrome [Recovered/Resolved]
  - Myoclonus [Recovered/Resolved]
  - Erythema [Recovering/Resolving]
